FAERS Safety Report 8569300 (Version 2)
Quarter: 2013Q2

REPORT INFORMATION
  Report Type: Spontaneous
  Country: US (occurrence: US)
  Receive Date: 20120518
  Receipt Date: 20130506
  Transmission Date: 20140414
  Serious: No
  Sender: FDA-Public Use
  Company Number: US-ASTRAZENECA-2011SE73765

PATIENT
  Sex: Male

DRUGS (2)
  1. PRILOSEC OTC [Suspect]
     Route: 048
  2. PRILOSEC OTC [Suspect]
     Route: 048

REACTIONS (3)
  - Constipation [Unknown]
  - Incorrect drug administration duration [Unknown]
  - Drug ineffective [Unknown]
